FAERS Safety Report 7203543-0 (Version None)
Quarter: 2010Q4

REPORT INFORMATION
  Report Type: 
  Country: None (occurrence: None)
  Receive Date: 20101230
  Receipt Date: 20101222
  Transmission Date: 20110411
  Serious: Yes (Hospitalization)
  Sender: FDA-Public Use
  Company Number: FR-ASTELLAS-2010EU006913

PATIENT
  Sex: Male

DRUGS (4)
  1. PROGRAF [Suspect]
     Indication: RENAL TRANSPLANT
     Dosage: 2 DF, UNKNOWN/D
     Route: 048
     Dates: start: 20090915
  2. CORTANCYL [Suspect]
     Indication: RENAL TRANSPLANT
     Dosage: 15 MG, UNKNOWN/D
     Route: 048
     Dates: start: 20090915
  3. RIMIFON [Suspect]
     Dosage: 1 DF, UNKNOWN/D
     Route: 048
  4. CELLCEPT [Suspect]
     Indication: RENAL TRANSPLANT
     Dosage: 750 MG, UNKNOWN/D
     Route: 065
     Dates: start: 20090915

REACTIONS (2)
  - HALLUCINATIONS, MIXED [None]
  - OVERDOSE [None]
